FAERS Safety Report 7415328-0 (Version None)
Quarter: 2011Q2

REPORT INFORMATION
  Report Type: 
  Country: None (occurrence: None)
  Receive Date: 20110414
  Receipt Date: 20110408
  Transmission Date: 20111010
  Serious: Yes (Death, Hospitalization)
  Sender: FDA-Public Use
  Company Number: A0862722A

PATIENT
  Age: 58 Year
  Sex: Male
  Weight: 90.9 kg

DRUGS (9)
  1. NORVASC [Concomitant]
  2. PLAVIX [Concomitant]
  3. ASPIRIN [Concomitant]
  4. PROTONIX [Concomitant]
  5. LIPITOR [Concomitant]
  6. NEPHRO-VITE [Concomitant]
  7. PHOSLO [Concomitant]
  8. AVANDIA [Suspect]
     Indication: DIABETES MELLITUS
     Dosage: 8MG PER DAY
     Route: 048
     Dates: start: 20040303, end: 20070903
  9. INSULIN [Concomitant]

REACTIONS (5)
  - LACUNAR INFARCTION [None]
  - CARDIAC ARREST [None]
  - VENTRICULAR TACHYCARDIA [None]
  - CARDIAC FAILURE CONGESTIVE [None]
  - CORONARY ARTERY DISEASE [None]
